FAERS Safety Report 18721430 (Version 1)
Quarter: 2021Q1

REPORT INFORMATION
  Report Type: Spontaneous
  Country: US (occurrence: US)
  Receive Date: 20210110
  Receipt Date: 20210110
  Transmission Date: 20210419
  Serious: No
  Sender: FDA-Public Use
  Company Number: NVSC2021US003798

PATIENT

DRUGS (1)
  1. ESTRADIOL. [Suspect]
     Active Substance: ESTRADIOL
     Indication: PRODUCT USED FOR UNKNOWN INDICATION
     Dosage: 0.075 MG, QD
     Route: 062

REACTIONS (5)
  - Rash macular [Unknown]
  - Hormone level abnormal [Unknown]
  - Drug ineffective [Unknown]
  - Hot flush [Unknown]
  - Product outer packaging issue [Unknown]
